FAERS Safety Report 7497817-6 (Version None)
Quarter: 2011Q2

REPORT INFORMATION
  Report Type: 
  Country: None (occurrence: None)
  Receive Date: 20110524
  Receipt Date: 20110418
  Transmission Date: 20111010
  Serious: Yes (Other)
  Sender: FDA-Public Use
  Company Number: US-BAYER-201033156NA

PATIENT
  Age: 35 Year
  Sex: Female
  Weight: 66.667 kg

DRUGS (7)
  1. YASMIN [Suspect]
     Indication: DYSFUNCTIONAL UTERINE BLEEDING
     Route: 048
  2. XANAX [Concomitant]
  3. AMBIEN [Concomitant]
  4. LORAZEPAM [Concomitant]
     Dosage: 0.5 MG, UNK
     Route: 048
  5. AZITHROMYCIN [Concomitant]
  6. AMLODIPINE [Concomitant]
  7. IBUPROFEN [Concomitant]
     Dosage: 800 MG, UNK
     Route: 048
     Dates: start: 20070101, end: 20080101

REACTIONS (5)
  - GALLBLADDER DISORDER [None]
  - BENIGN HEPATIC NEOPLASM [None]
  - ORGAN FAILURE [None]
  - CHOLECYSTITIS [None]
  - BILIARY DYSKINESIA [None]
